FAERS Safety Report 10075953 (Version 1)
Quarter: 2014Q2

REPORT INFORMATION
  Report Type: Spontaneous
  Country: KR (occurrence: KR)
  Receive Date: 20140414
  Receipt Date: 20140414
  Transmission Date: 20141212
  Serious: Yes (Hospitalization)
  Sender: FDA-Public Use
  Company Number: PHHY2014KR043684

PATIENT
  Age: 64 Year
  Sex: Female

DRUGS (4)
  1. FAMVIR [Suspect]
     Indication: HERPES ZOSTER
     Dosage: 250 MG, TID
     Route: 048
     Dates: start: 20140331, end: 20140404
  2. TYLENOL [Concomitant]
     Dosage: UNK UKN, TID
     Route: 048
     Dates: start: 20140331, end: 20140404
  3. UCERAX [Concomitant]
     Dosage: UNK UKN, UNK
     Route: 048
     Dates: start: 20140331, end: 20140404
  4. REBAMIPIDE [Concomitant]
     Dosage: UNK UKN, TID
     Route: 048
     Dates: start: 20140331, end: 20140404

REACTIONS (4)
  - Contusion [Recovering/Resolving]
  - Oral mucosal blistering [Recovering/Resolving]
  - Condition aggravated [Recovering/Resolving]
  - Thrombocytopenia [Recovering/Resolving]
